FAERS Safety Report 9003535 (Version 2)
Quarter: 2013Q1

REPORT INFORMATION
  Report Type: Spontaneous
  Country: US (occurrence: US)
  Receive Date: 20130108
  Receipt Date: 20130110
  Transmission Date: 20140127
  Serious: Yes (Other)
  Sender: FDA-Public Use
  Company Number: PHHY2013US001574

PATIENT
  Age: 64 Year
  Sex: Male

DRUGS (12)
  1. ALLOPURINOL [Suspect]
     Dosage: 100 MG, BID
  2. HYDROXYUREA [Concomitant]
  3. LORAZEPAM [Concomitant]
  4. AZITHROMYCIN [Concomitant]
  5. FERROUS SULPHATE [Concomitant]
  6. AMLODIPINE [Concomitant]
  7. DOCUSATE [Concomitant]
  8. TAMSULOSIN [Concomitant]
  9. POTASSIUM CITRATE [Concomitant]
  10. FUROSEMIDE [Concomitant]
  11. CALCITRIOL [Concomitant]
  12. LANSOPRAZOLE [Concomitant]

REACTIONS (4)
  - Interstitial granulomatous dermatitis [Recovered/Resolved]
  - Papule [Recovered/Resolved]
  - Rash pruritic [Recovered/Resolved]
  - Skin plaque [Recovered/Resolved]
